FAERS Safety Report 17035539 (Version 1)
Quarter: 2019Q4

REPORT INFORMATION
  Report Type: Spontaneous
  Country: US (occurrence: US)
  Receive Date: 20191114
  Receipt Date: 20191114
  Transmission Date: 20200122
  Serious: Yes (Life-Threatening)
  Sender: FDA-Public Use
  Company Number: None

PATIENT
  Age: 31 Month
  Sex: Female
  Weight: 45 kg

DRUGS (1)
  1. NORETHINDRONE 0.35 MG [Suspect]
     Active Substance: NORETHINDRONE
     Indication: CONTRACEPTION
     Dates: start: 20180628

REACTIONS (5)
  - Hair growth abnormal [None]
  - Hypoaesthesia [None]
  - Dizziness [None]
  - Feeling abnormal [None]
  - Balance disorder [None]

NARRATIVE: CASE EVENT DATE: 20191101
